FAERS Safety Report 20822387 (Version 2)
Quarter: 2022Q2

REPORT INFORMATION
  Report Type: Spontaneous
  Country: US (occurrence: US)
  Receive Date: 20220512
  Receipt Date: 20220527
  Transmission Date: 20220721
  Serious: Yes (Hospitalization)
  Sender: FDA-Public Use
  Company Number: US-TEVA-2022-US-2035103

PATIENT
  Age: 21 Year
  Sex: Female
  Weight: 68 kg

DRUGS (15)
  1. PROPOFOL [Suspect]
     Active Substance: PROPOFOL
     Indication: Anaesthesia
     Dosage: 125-150 MICROG/KG/MIN
     Route: 050
  2. HYDROMORPHONE [Suspect]
     Active Substance: HYDROMORPHONE
     Indication: Sedative therapy
     Route: 065
  3. MIDAZOLAM [Suspect]
     Active Substance: MIDAZOLAM
     Indication: Sedative therapy
     Route: 042
  4. DEXMEDETOMIDINE [Suspect]
     Active Substance: DEXMEDETOMIDINE
     Indication: Nervous system disorder
     Dosage: FOUR DOSES OUT OF WHICH 3 DOSES ADMINISTERED AT 5-MINUTE INTERVAL
     Route: 040
  5. DEXMEDETOMIDINE [Suspect]
     Active Substance: DEXMEDETOMIDINE
     Route: 041
  6. ACETAMINOPHEN [Concomitant]
     Active Substance: ACETAMINOPHEN
     Indication: Product used for unknown indication
     Route: 048
  7. CELECOXIB [Concomitant]
     Active Substance: CELECOXIB
     Indication: Product used for unknown indication
     Route: 048
  8. FENTANYL [Concomitant]
     Active Substance: FENTANYL
     Indication: Sedative therapy
     Route: 042
  9. KETAMINE [Concomitant]
     Active Substance: KETAMINE
     Indication: Sedative therapy
     Route: 042
  10. BUPIVACAINE [Concomitant]
     Active Substance: BUPIVACAINE
     Indication: Product used for unknown indication
     Route: 037
  11. DEXAMETHASONE [Concomitant]
     Active Substance: DEXAMETHASONE
     Indication: Product used for unknown indication
     Route: 042
  12. CEFAZOLIN [Concomitant]
     Active Substance: CEFAZOLIN
     Indication: Product used for unknown indication
     Route: 042
  13. TRANEXAMIC ACID [Concomitant]
     Active Substance: TRANEXAMIC ACID
     Indication: Product used for unknown indication
     Route: 042
  14. PHENYLEPHRINE [Concomitant]
     Active Substance: PHENYLEPHRINE HYDROCHLORIDE
     Indication: Product used for unknown indication
     Dosage: TOTAL DOSE: 800UG
     Route: 042
  15. ROPIVACAINE [Concomitant]
     Active Substance: ROPIVACAINE
     Indication: Analgesic therapy
     Route: 065

REACTIONS (6)
  - Nervous system disorder [Recovered/Resolved]
  - Apnoea [Recovered/Resolved]
  - Hypopnoea [Recovered/Resolved]
  - Blood creatine phosphokinase increased [Recovered/Resolved]
  - Paralysis [Recovered/Resolved]
  - Off label use [Unknown]
